FAERS Safety Report 20959439 (Version 15)
Quarter: 2024Q2

REPORT INFORMATION
  Report Type: Report from Study
  Country: CA (occurrence: CA)
  Receive Date: 20220614
  Receipt Date: 20240611
  Transmission Date: 20240715
  Serious: Yes (Hospitalization)
  Sender: FDA-Public Use
  Company Number: CA-BIOGEN-2022BI01115026

PATIENT
  Age: 52 Year
  Sex: Female

DRUGS (10)
  1. TYSABRI [Suspect]
     Active Substance: NATALIZUMAB
     Indication: Relapsing-remitting multiple sclerosis
     Dosage: 4-8 WEEKS
     Route: 050
     Dates: start: 20161019
  2. TYSABRI [Suspect]
     Active Substance: NATALIZUMAB
     Dosage: 4-8 WEEKS
     Route: 050
     Dates: start: 20161019
  3. TYSABRI [Suspect]
     Active Substance: NATALIZUMAB
     Route: 050
     Dates: start: 20220802
  4. TYSABRI [Suspect]
     Active Substance: NATALIZUMAB
     Dosage: Q4-5 WEEKS
     Route: 050
     Dates: start: 20161019
  5. TYSABRI [Suspect]
     Active Substance: NATALIZUMAB
     Dosage: Q4-8WEEKS
     Route: 050
     Dates: start: 20161019
  6. TYSABRI [Suspect]
     Active Substance: NATALIZUMAB
     Route: 050
     Dates: start: 20161019
  7. TYSABRI [Suspect]
     Active Substance: NATALIZUMAB
     Dosage: Q 4-8 WEEKS
     Route: 050
     Dates: start: 20161019
  8. PREDNISONE [Interacting]
     Active Substance: PREDNISONE
     Indication: Multiple sclerosis relapse
     Dosage: 3 DAYS
     Route: 050
  9. PREDNISONE [Interacting]
     Active Substance: PREDNISONE
     Route: 050
  10. PREDNISONE [Interacting]
     Active Substance: PREDNISONE
     Route: 050

REACTIONS (8)
  - Crohn^s disease [Recovered/Resolved]
  - Prescribed underdose [Not Recovered/Not Resolved]
  - Multiple sclerosis relapse [Recovered/Resolved]
  - Multiple sclerosis [Not Recovered/Not Resolved]
  - Arthralgia [Not Recovered/Not Resolved]
  - Drug interaction [Not Recovered/Not Resolved]
  - Gait disturbance [Unknown]
  - Muscle spasms [Not Recovered/Not Resolved]

NARRATIVE: CASE EVENT DATE: 20220401
